FAERS Safety Report 8931662 (Version 3)
Quarter: 2013Q1

REPORT INFORMATION
  Report Type: Spontaneous
  Country: US (occurrence: US)
  Receive Date: 20121128
  Receipt Date: 20130220
  Transmission Date: 20140127
  Serious: Yes (Other)
  Sender: FDA-Public Use
  Company Number: US-PFIZER INC-2012297784

PATIENT
  Sex: Female

DRUGS (1)
  1. LYRICA [Suspect]
     Dosage: TWO 75MG
     Dates: start: 2009, end: 20121123

REACTIONS (5)
  - Lip swelling [Not Recovered/Not Resolved]
  - Glossodynia [Not Recovered/Not Resolved]
  - Lip oedema [Not Recovered/Not Resolved]
  - Pain [Not Recovered/Not Resolved]
  - Intentional drug misuse [Unknown]
